FAERS Safety Report 9377743 (Version 1)
Quarter: 2013Q3

REPORT INFORMATION
  Report Type: Spontaneous
  Country: US (occurrence: US)
  Receive Date: 20130701
  Receipt Date: 20130701
  Transmission Date: 20140515
  Serious: Yes (Other)
  Sender: FDA-Public Use
  Company Number: US-PFIZER INC-2013192593

PATIENT
  Sex: Female

DRUGS (1)
  1. LIPITOR [Suspect]
     Dosage: UNK

REACTIONS (7)
  - Muscle disorder [Unknown]
  - Insomnia [Unknown]
  - Pain in extremity [Unknown]
  - Pain [Unknown]
  - Muscular weakness [Unknown]
  - Impaired driving ability [Unknown]
  - Gait disturbance [Unknown]
